FAERS Safety Report 11798396 (Version 1)
Quarter: 2015Q4

REPORT INFORMATION
  Report Type: Report from Study
  Country: US (occurrence: US)
  Receive Date: 20151203
  Receipt Date: 20151203
  Transmission Date: 20160305
  Serious: No
  Sender: FDA-Public Use
  Company Number: US-AMGEN-USASL2015125459

PATIENT
  Age: 54 Year
  Sex: Female

DRUGS (1)
  1. ENBREL [Suspect]
     Active Substance: ETANERCEPT
     Indication: RHEUMATOID ARTHRITIS
     Dosage: 50 MG, QWK
     Route: 065
     Dates: start: 20150401

REACTIONS (7)
  - Limb discomfort [Unknown]
  - Gait disturbance [Unknown]
  - Arthralgia [Unknown]
  - Back pain [Unknown]
  - Pain [Unknown]
  - Pain in extremity [Unknown]
  - Drug effect incomplete [Unknown]

NARRATIVE: CASE EVENT DATE: 2015
